FAERS Safety Report 8510569-3 (Version None)
Quarter: 2012Q3

REPORT INFORMATION
  Report Type: 
  Country: None (occurrence: None)
  Receive Date: 20120716
  Receipt Date: 20120703
  Transmission Date: 20120928
  Serious: Yes (Other)
  Sender: FDA-Public Use
  Company Number: AT-BIOGENIDEC-2012BI024478

PATIENT
  Sex: Female

DRUGS (2)
  1. TYSABRI [Suspect]
  2. TYSABRI [Suspect]
     Indication: MULTIPLE SCLEROSIS
     Route: 042
     Dates: end: 20110101

REACTIONS (2)
  - MULTIPLE SCLEROSIS RELAPSE [None]
  - CAESAREAN SECTION [None]
